FAERS Safety Report 4298492-4 (Version None)
Quarter: 2004Q1

REPORT INFORMATION
  Report Type: 
  Country: None (occurrence: None)
  Receive Date: 20040218
  Receipt Date: 20031117
  Transmission Date: 20041129
  Serious: Yes (Other)
  Sender: FDA-Public Use
  Company Number: US-BRISTOL-MYERS SQUIBB COMPANY-12441358

PATIENT
  Sex: Female

DRUGS (12)
  1. STADOL [Suspect]
     Indication: HEADACHE
     Route: 045
  2. STADOL [Suspect]
     Indication: TENSION HEADACHE
     Route: 045
  3. STADOL [Suspect]
     Indication: MIGRAINE
     Route: 045
  4. CHLORZOXAZONE [Concomitant]
  5. ESGIC-PLUS [Concomitant]
  6. AMITRIPTYLINE [Concomitant]
  7. XANAX [Concomitant]
  8. VERAPAMIL [Concomitant]
  9. INDOCIN [Concomitant]
  10. ELAVIL [Concomitant]
  11. ZOLOFT [Concomitant]
  12. COMPAZINE [Concomitant]

REACTIONS (2)
  - ANXIETY [None]
  - DEPENDENCE [None]
